FAERS Safety Report 10040623 (Version 1)
Quarter: 2014Q1

REPORT INFORMATION
  Report Type: Spontaneous
  Country: US (occurrence: US)
  Receive Date: 20140327
  Receipt Date: 20140327
  Transmission Date: 20141002
  Serious: No
  Sender: FDA-Public Use
  Company Number: US-GLAXOSMITHKLINE-A1061001A

PATIENT
  Age: 64 Year
  Sex: Female

DRUGS (4)
  1. MEKINIST [Suspect]
     Indication: MALIGNANT MELANOMA
     Dosage: 2MG PER DAY
     Route: 048
     Dates: start: 20131219, end: 20140213
  2. TAFINLAR [Suspect]
     Indication: MALIGNANT MELANOMA
     Dosage: 150MG TWICE PER DAY
     Route: 048
     Dates: start: 20131219, end: 20140213
  3. BENADRYL [Suspect]
     Indication: PRURITUS
     Route: 065
     Dates: start: 20140208
  4. PERCOCET [Concomitant]

REACTIONS (3)
  - Jaundice [Not Recovered/Not Resolved]
  - Pruritus [Unknown]
  - Ocular icterus [Unknown]
